FAERS Safety Report 15920944 (Version 1)
Quarter: 2019Q1

REPORT INFORMATION
  Report Type: Spontaneous
  Country: BE (occurrence: BE)
  Receive Date: 20190205
  Receipt Date: 20190205
  Transmission Date: 20190417
  Serious: Yes (Death)
  Sender: FDA-Public Use
  Company Number: BE-PFIZER INC-2019047602

PATIENT
  Age: 72 Year
  Sex: Male

DRUGS (1)
  1. GENOTONORM [Suspect]
     Active Substance: SOMATROPIN
     Dosage: UNK
     Dates: start: 2009

REACTIONS (1)
  - Completed suicide [Fatal]
